FAERS Safety Report 5042721-6 (Version None)
Quarter: 2006Q3

REPORT INFORMATION
  Report Type: 
  Country: None (occurrence: None)
  Receive Date: 20060705
  Receipt Date: 20060620
  Transmission Date: 20061208
  Serious: Yes (Death)
  Sender: FDA-Public Use
  Company Number: ZA-AVENTIS-200613577EU

PATIENT
  Age: 83 Year
  Sex: Male

DRUGS (9)
  1. LASIX [Suspect]
     Dosage: DOSE: DOSAGE UNKNOWN
  2. PLAVIX [Suspect]
     Indication: CORONARY ARTERIAL STENT INSERTION
     Route: 048
     Dates: start: 20060505, end: 20060527
  3. CIPROBAY [Suspect]
     Dosage: DOSE: DOSAGE UNKNOWN
  4. CARDURA [Suspect]
     Dosage: DOSE: DOSAGE UNKNOWN
  5. ZIAK [Suspect]
     Dosage: DOSE: DOSAGE UNKNOWN
  6. NEXIUM [Suspect]
     Dosage: DOSE: DOSAGE UNKNOWN
  7. ECOTRIN [Suspect]
     Dosage: DOSE: DOSAGE UNKNOWN
  8. ULSANIC [Suspect]
     Dosage: DOSE: DOSAGE UNKNOWN
  9. SIMVASTATIN [Suspect]
     Dosage: DOSE: DOSAGE UNKNOWN

REACTIONS (6)
  - HEPATIC FAILURE [None]
  - JAUNDICE [None]
  - JAUNDICE CHOLESTATIC [None]
  - JAUNDICE HEPATOCELLULAR [None]
  - POST PROCEDURAL COMPLICATION [None]
  - RASH [None]
